FAERS Safety Report 11654815 (Version 2)
Quarter: 2015Q4

REPORT INFORMATION
  Report Type: Report from Study
  Country: DK (occurrence: DK)
  Receive Date: 20151023
  Receipt Date: 20151128
  Transmission Date: 20160304
  Serious: Yes (Death)
  Sender: FDA-Public Use
  Company Number: PHHY2012DK037043

PATIENT
  Age: 70 Year
  Sex: Male

DRUGS (1)
  1. SANDOSTATIN LAR DEPOT [Suspect]
     Active Substance: OCTREOTIDE ACETATE
     Indication: NEOPLASM MALIGNANT
     Dosage: 30 OT, UNK
     Route: 030
     Dates: start: 20110805

REACTIONS (3)
  - Product use issue [Unknown]
  - Eating disorder [Unknown]
  - Concomitant disease progression [Fatal]

NARRATIVE: CASE EVENT DATE: 201112
